FAERS Safety Report 22157060 (Version 2)
Quarter: 2023Q2

REPORT INFORMATION
  Report Type: Report from Study
  Country: US (occurrence: US)
  Receive Date: 20230330
  Receipt Date: 20230501
  Transmission Date: 20230722
  Serious: No
  Sender: FDA-Public Use
  Company Number: US-TAKEDA-2023TUS031995

PATIENT
  Sex: Female
  Weight: 63 kg

DRUGS (3)
  1. IXAZOMIB [Suspect]
     Active Substance: IXAZOMIB
     Indication: Plasma cell myeloma
     Dosage: 4 MILLIGRAM
     Route: 048
     Dates: start: 20230228, end: 20230314
  2. POMALYST [Concomitant]
     Active Substance: POMALIDOMIDE
     Indication: Plasma cell myeloma
     Dosage: UNK
     Route: 065
  3. CYCLOPHOSPHAMIDE [Concomitant]
     Active Substance: CYCLOPHOSPHAMIDE
     Indication: Plasma cell myeloma
     Dosage: UNK
     Route: 065

REACTIONS (15)
  - Abdominal pain [Unknown]
  - Respiration abnormal [Unknown]
  - Micturition disorder [Unknown]
  - Illness [Unknown]
  - Urinary tract disorder [Unknown]
  - Tremor [Unknown]
  - Dyspepsia [Unknown]
  - Asthenia [Unknown]
  - Fatigue [Unknown]
  - Rash macular [Unknown]
  - Constipation [Unknown]
  - Vomiting [Unknown]
  - Diarrhoea [Unknown]
  - Rash [Unknown]
  - Nausea [Unknown]
